FAERS Safety Report 7770235-9 (Version None)
Quarter: 2011Q3

REPORT INFORMATION
  Report Type: 
  Country: None (occurrence: None)
  Receive Date: 20110922
  Receipt Date: 20100920
  Transmission Date: 20111222
  Serious: No
  Sender: FDA-Public Use
  Company Number: US-ASTRAZENECA-2010SE44188

PATIENT
  Age: 89 Year
  Sex: Female
  Weight: 44.5 kg

DRUGS (8)
  1. EXELON [Concomitant]
  2. NAMENDA [Concomitant]
  3. LISINOPRIL [Concomitant]
  4. METOPROLOL TARTRATE [Concomitant]
  5. SEROQUEL [Suspect]
     Route: 048
     Dates: start: 20100601
  6. ALENDRONATE SODIUM [Concomitant]
  7. SEROQUEL [Suspect]
     Indication: INSOMNIA
     Route: 048
  8. VITAMIN D [Concomitant]

REACTIONS (4)
  - INSOMNIA [None]
  - AGITATION [None]
  - DRUG DOSE OMISSION [None]
  - DRUG INEFFECTIVE [None]
